FAERS Safety Report 7589234-5 (Version None)
Quarter: 2011Q3

REPORT INFORMATION
  Report Type: 
  Country: None (occurrence: None)
  Receive Date: 20110705
  Receipt Date: 20110627
  Transmission Date: 20111222
  Serious: Yes (Other)
  Sender: FDA-Public Use
  Company Number: US-JNJFOC-20110612668

PATIENT
  Sex: Male

DRUGS (2)
  1. INVEGA SUSTENNA [Suspect]
     Indication: SCHIZOPHRENIA
     Route: 030
     Dates: end: 20110201
  2. LISINOPRIL [Concomitant]
     Indication: HYPERTENSION
     Route: 048

REACTIONS (3)
  - IRRITABILITY [None]
  - PARANOIA [None]
  - DRUG INEFFECTIVE [None]
